FAERS Safety Report 24413514 (Version 1)
Quarter: 2024Q4

REPORT INFORMATION
  Report Type: Spontaneous
  Country: US (occurrence: US)
  Receive Date: 20241008
  Receipt Date: 20241008
  Transmission Date: 20250115
  Serious: No
  Sender: ABBVIE
  Company Number: US-ABBVIE-5955852

PATIENT
  Sex: Male

DRUGS (1)
  1. ELUXADOLINE [Suspect]
     Active Substance: ELUXADOLINE
     Indication: Diarrhoea
     Route: 048
     Dates: end: 20240926

REACTIONS (1)
  - Diarrhoea [Unknown]
